FAERS Safety Report 5244255-2 (Version None)
Quarter: 2007Q1

REPORT INFORMATION
  Report Type: 
  Country: None (occurrence: None)
  Receive Date: 20070222
  Receipt Date: 20070212
  Transmission Date: 20070707
  Serious: Yes (Other)
  Sender: FDA-Public Use
  Company Number: PHEH2005US01858

PATIENT
  Age: 54 Year
  Sex: Female
  Weight: 63.492 kg

DRUGS (24)
  1. ZOMETA [Suspect]
     Indication: METASTASES TO BONE
     Dosage: 4 MG EVERY 3-4 WEEKS
     Dates: start: 20040901, end: 20050101
  2. PROTONIX [Concomitant]
  3. ELAVIL [Concomitant]
  4. LIPITOR                                 /NET/ [Concomitant]
  5. FLEXERIL [Concomitant]
  6. ADRIAMYCIN PFS [Concomitant]
  7. CYTOXAN [Concomitant]
  8. FLUOROURACIL [Concomitant]
  9. ALOXI [Concomitant]
  10. DECADRON [Concomitant]
  11. ATIVAN [Concomitant]
  12. LORCET-HD [Concomitant]
  13. OXYCONTIN [Concomitant]
     Indication: BACK PAIN
  14. AREDIA [Suspect]
     Indication: METASTASES TO BONE
     Dosage: 90 MG, UNK
     Dates: start: 20050701, end: 20050901
  15. AREDIA [Suspect]
     Dosage: 90 MG, UNK
     Dates: start: 20051001, end: 20060201
  16. AREDIA [Suspect]
     Dosage: 60 MG Q3MONTHS
     Dates: start: 20050501, end: 20050701
  17. HEPARIN [Concomitant]
  18. CITALOPRAM HYDROBROMIDE [Concomitant]
     Dosage: 10 MG, QHS
     Route: 048
     Dates: start: 20050201
  19. WARFARIN SODIUM [Concomitant]
  20. CYCLOBENZAPRINE HCL [Concomitant]
  21. DIOVAN [Concomitant]
  22. COLACE [Concomitant]
  23. MAXZIDE [Concomitant]
     Dosage: UNK, QD
     Route: 048
     Dates: start: 20041101
  24. NSAID'S [Suspect]

REACTIONS (49)
  - ANAEMIA [None]
  - ANXIETY [None]
  - BACK PAIN [None]
  - BLOOD CREATININE INCREASED [None]
  - BONE DISORDER [None]
  - BONE LESION [None]
  - BONE SCAN ABNORMAL [None]
  - CERVICAL SPINAL STENOSIS [None]
  - CHEST PAIN [None]
  - COMPRESSION FRACTURE [None]
  - COMPUTERISED TOMOGRAM ABNORMAL [None]
  - DEPRESSION [None]
  - DIZZINESS [None]
  - FATIGUE [None]
  - FEBRILE NEUTROPENIA [None]
  - GAIT DISTURBANCE [None]
  - GASTROOESOPHAGEAL REFLUX DISEASE [None]
  - GINGIVAL ATROPHY [None]
  - GINGIVAL ULCERATION [None]
  - GLOMERULAR FILTRATION RATE DECREASED [None]
  - HEADACHE [None]
  - HYPERREFLEXIA [None]
  - IMPAIRED HEALING [None]
  - INJURY [None]
  - INTERVERTEBRAL DISC PROTRUSION [None]
  - KYPHOSIS [None]
  - LHERMITTE'S SIGN [None]
  - MALIGNANT NEOPLASM PROGRESSION [None]
  - NAUSEA [None]
  - NEPHROSCLEROSIS [None]
  - NUCLEAR MAGNETIC RESONANCE IMAGING ABNORMAL [None]
  - ORAL INFECTION [None]
  - ORAL MUCOSAL EXFOLIATION [None]
  - ORAL SOFT TISSUE DISORDER [None]
  - OSTEOARTHRITIS [None]
  - OSTEONECROSIS [None]
  - PAIN [None]
  - PAIN IN JAW [None]
  - RENAL FAILURE CHRONIC [None]
  - SINUSITIS [None]
  - SLEEP APNOEA SYNDROME [None]
  - SPINAL OSTEOARTHRITIS [None]
  - SPINAL X-RAY ABNORMAL [None]
  - SYNCOPE [None]
  - TANDEM GAIT TEST ABNORMAL [None]
  - TONGUE ULCERATION [None]
  - TOOTH DISORDER [None]
  - TOOTH EXTRACTION [None]
  - VISION BLURRED [None]
